FAERS Safety Report 10424685 (Version 3)
Quarter: 2014Q3

REPORT INFORMATION
  Report Type: Report from Study
  Country: US (occurrence: US)
  Receive Date: 20140902
  Receipt Date: 20140922
  Transmission Date: 20150326
  Serious: Yes (Hospitalization, Other)
  Sender: FDA-Public Use
  Company Number: US-SA-2014SA080713

PATIENT
  Age: 37 Year
  Sex: Female

DRUGS (2)
  1. AUBAGIO [Suspect]
     Active Substance: TERIFLUNOMIDE
     Indication: MULTIPLE SCLEROSIS
     Route: 048
     Dates: start: 20131031, end: 20140610
  2. AUBAGIO [Suspect]
     Active Substance: TERIFLUNOMIDE
     Indication: MULTIPLE SCLEROSIS
     Route: 048

REACTIONS (15)
  - Multiple sclerosis relapse [Unknown]
  - Urinary incontinence [Recovering/Resolving]
  - Memory impairment [Unknown]
  - Muscular weakness [Unknown]
  - Drug dose omission [Unknown]
  - Pain [Unknown]
  - Tremor [Unknown]
  - Urinary tract infection [Unknown]
  - Depression [Unknown]
  - Stress [Unknown]
  - Fall [Unknown]
  - Hypoaesthesia [Unknown]
  - Abasia [Unknown]
  - Gait disturbance [Recovering/Resolving]
  - Central nervous system lesion [Unknown]

NARRATIVE: CASE EVENT DATE: 20140611
